FAERS Safety Report 24753615 (Version 1)
Quarter: 2024Q4

REPORT INFORMATION
  Report Type: Report from Study
  Country: KR (occurrence: KR)
  Receive Date: 20241219
  Receipt Date: 20241219
  Transmission Date: 20250115
  Serious: Yes (Death, Hospitalization)
  Sender: AMGEN
  Company Number: KR-AMGEN-KORNI2024231489

PATIENT
  Age: 56 Year
  Sex: Male

DRUGS (2)
  1. TARLATAMAB [Suspect]
     Active Substance: TARLATAMAB
     Indication: Small cell lung cancer
     Dosage: 1 MILLIGRAM
     Route: 040
     Dates: start: 20241106
  2. TARLATAMAB [Suspect]
     Active Substance: TARLATAMAB
     Dosage: 10 MILLIGRAM
     Route: 040
     Dates: end: 20241113

REACTIONS (1)
  - Disease progression [Fatal]
